FAERS Safety Report 9554163 (Version 1)
Quarter: 2013Q3

REPORT INFORMATION
  Report Type: Report from Study
  Country: DE (occurrence: DE)
  Receive Date: 20130925
  Receipt Date: 20130925
  Transmission Date: 20140515
  Serious: Yes (Other)
  Sender: FDA-Public Use
  Company Number: DE-B.I. PHARMACEUTICALS,INC./RIDGEFIELD-2013-BI-29172DE

PATIENT
  Age: 49 Year
  Sex: Male
  Weight: 76 kg

DRUGS (2)
  1. ATROVENT [Suspect]
     Route: 042
     Dates: start: 20130917
  2. SALBUTAMOL [Suspect]
     Route: 042

REACTIONS (1)
  - Drug administration error [Unknown]
